FAERS Safety Report 8319278-7 (Version None)
Quarter: 2012Q2

REPORT INFORMATION
  Report Type: 
  Country: None (occurrence: None)
  Receive Date: 20120427
  Receipt Date: 20090904
  Transmission Date: 20120825
  Serious: No
  Sender: FDA-Public Use
  Company Number: US-TEVA-2009010184

PATIENT
  Sex: Female
  Weight: 64.922 kg

DRUGS (2)
  1. ASPIRIN [Concomitant]
     Indication: HEADACHE
  2. NUVIGIL [Suspect]
     Indication: NARCOLEPSY
     Dates: start: 20090830, end: 20090901

REACTIONS (4)
  - HEADACHE [None]
  - IRRITABILITY [None]
  - INSOMNIA [None]
  - DIZZINESS [None]
